FAERS Safety Report 15278268 (Version 1)
Quarter: 2018Q3

REPORT INFORMATION
  Report Type: Spontaneous
  Country: US (occurrence: US)
  Receive Date: 20180814
  Receipt Date: 20180814
  Transmission Date: 20181010
  Serious: No
  Sender: FDA-Public Use
  Company Number: US-GALDERMA-US18016674

PATIENT
  Age: 30 Year
  Sex: Male

DRUGS (5)
  1. PROACTIV MD DEEP CLEANSING FACE WASH [Concomitant]
     Active Substance: COSMETICS
     Route: 061
     Dates: start: 20180315, end: 20180323
  2. PROACTIV SOLUTION BLACKHEAD DISSOLVING [Concomitant]
     Active Substance: SALICYLIC ACID
     Route: 061
     Dates: start: 20180315, end: 20180323
  3. PROACTIV MD ADAPALENE ACNE TREATMENT [Suspect]
     Active Substance: ADAPALENE
     Indication: PIGMENTATION DISORDER
     Dosage: 0.1%
     Route: 061
     Dates: start: 20180315, end: 20180323
  4. PROACTIV MD DAILY OIL CONTROL SPF 30 [Suspect]
     Active Substance: AVOBENZONE\OCTISALATE\OCTOCRYLENE
     Route: 061
     Dates: start: 20180315, end: 20180323
  5. PROACTIV DEEP CLEANSING WASH [Concomitant]
     Active Substance: SALICYLIC ACID
     Route: 061
     Dates: start: 20180315, end: 20180323

REACTIONS (6)
  - Dry skin [Recovering/Resolving]
  - Skin burning sensation [Recovering/Resolving]
  - Pruritus [Recovering/Resolving]
  - Product use in unapproved indication [Recovered/Resolved]
  - Overdose [Recovered/Resolved]
  - Inappropriate schedule of drug administration [Recovered/Resolved]

NARRATIVE: CASE EVENT DATE: 20180315
